FAERS Safety Report 11616496 (Version 1)
Quarter: 2015Q4

REPORT INFORMATION
  Report Type: Spontaneous
  Country: CL (occurrence: CL)
  Receive Date: 20151009
  Receipt Date: 20151009
  Transmission Date: 20160304
  Serious: Yes (Other)
  Sender: FDA-Public Use
  Company Number: CL-PFIZER INC-2015330947

PATIENT
  Age: 69 Year
  Sex: Female

DRUGS (5)
  1. TAREG [Concomitant]
     Active Substance: VALSARTAN
     Dosage: UNK
     Route: 048
     Dates: start: 2010
  2. EUTIROX [Concomitant]
     Active Substance: LEVOTHYROXINE SODIUM
     Indication: HYPOTHYROIDISM
     Dosage: UNK
     Dates: start: 2010
  3. GLAFORNIL [Concomitant]
     Indication: INSULIN RESISTANCE
     Dosage: UNK
     Route: 048
     Dates: start: 2004
  4. ELCAL-D [Concomitant]
     Active Substance: CALCIUM CARBONATE\CHOLECALCIFEROL
     Dosage: UNK
     Route: 048
     Dates: start: 2004
  5. XALATAN [Suspect]
     Active Substance: LATANOPROST
     Indication: GLAUCOMA
     Dosage: 1 GTT, DAILY
     Route: 047
     Dates: start: 2012

REACTIONS (1)
  - Cataract [Unknown]
